FAERS Safety Report 5014782-1 (Version None)
Quarter: 2006Q2

REPORT INFORMATION
  Report Type: 
  Country: None (occurrence: None)
  Receive Date: 20060424
  Receipt Date: 20050301
  Transmission Date: 20061013
  Serious: Yes (Disabling, Other)
  Sender: FDA-Public Use
  Company Number: WAES 0412USA00732

PATIENT
  Age: 78 Year
  Sex: Female
  Weight: 54.8852 kg

DRUGS (7)
  1. SINGULAIR [Suspect]
     Indication: ASTHMA
     Dosage: 10 MG/DAILY/PO
     Route: 048
     Dates: start: 19980312, end: 20041118
  2. ADVAIR DISKUS 100/50 [Concomitant]
  3. ATACAND HCT [Concomitant]
  4. ATROVENT [Concomitant]
  5. DILTIAZEM HCL [Concomitant]
  6. EVISTA [Concomitant]
  7. SPIRIVA [Concomitant]

REACTIONS (3)
  - HYPOAESTHESIA [None]
  - INSOMNIA [None]
  - PARAESTHESIA [None]
